FAERS Safety Report 9920828 (Version 1)
Quarter: 2014Q1

REPORT INFORMATION
  Report Type: Report from Study
  Country: US (occurrence: US)
  Receive Date: 20140224
  Receipt Date: 20140224
  Transmission Date: 20141002
  Serious: Yes (Other)
  Sender: FDA-Public Use
  Company Number: US-ROCHE-1331606

PATIENT
  Sex: Female

DRUGS (10)
  1. LUCENTIS [Suspect]
     Indication: DIABETIC RETINAL OEDEMA
     Route: 050
     Dates: start: 20070119
  2. AVASTIN [Suspect]
     Indication: PRODUCT USED FOR UNKNOWN INDICATION
     Route: 050
     Dates: start: 20120326
  3. LIPITOR [Concomitant]
     Route: 048
  4. CHLORPROMAZINE [Concomitant]
     Route: 048
  5. GLIPIZIDE [Concomitant]
     Route: 048
  6. ALPRAZOLAM [Concomitant]
     Dosage: QHS
     Route: 048
  7. ASPIRIN [Concomitant]
     Route: 048
  8. ATENOLOL [Concomitant]
     Route: 048
  9. POLYTRIM OPHTHALMIC SOLUTION [Concomitant]
     Dosage: 3 DAYS BEFORE, ON THE DAY OF, 3 DAYS AFTER
     Route: 065
  10. DORZOLAMIDE HYDROCHLORIDE/TIMOLOL MALEATE [Concomitant]
     Route: 065

REACTIONS (5)
  - Diabetic retinal oedema [Unknown]
  - Visual acuity reduced [Unknown]
  - Vision blurred [Unknown]
  - Off label use [Unknown]
  - Vitreous adhesions [Unknown]
